FAERS Safety Report 23260333 (Version 1)
Quarter: 2023Q4

REPORT INFORMATION
  Report Type: Spontaneous
  Country: JP (occurrence: JP)
  Receive Date: 20231204
  Receipt Date: 20231204
  Transmission Date: 20240109
  Serious: Yes (Hospitalization)
  Sender: FDA-Public Use
  Company Number: JP-JNJFOC-20231204965

PATIENT
  Age: 6 Decade
  Sex: Male

DRUGS (4)
  1. INVEGA [Suspect]
     Active Substance: PALIPERIDONE
     Indication: Epileptic psychosis
     Dosage: DOSE UNKNOWN
     Route: 048
  2. FOSPHENYTOIN [FOSPHENYTOIN SODIUM] [Concomitant]
     Indication: Status epilepticus
     Dosage: DOSE UNKNOWN
     Route: 042
  3. LEVETIRACETAM [Concomitant]
     Active Substance: LEVETIRACETAM
     Dosage: DOSE UNKNOWN
     Route: 065
  4. ARIPIPRAZOLE [Concomitant]
     Active Substance: ARIPIPRAZOLE
     Indication: Epileptic psychosis
     Dosage: DOSE UNKNOWN
     Route: 065

REACTIONS (5)
  - Reduced facial expression [Unknown]
  - Posture abnormal [Unknown]
  - Bradykinesia [Unknown]
  - Sedation complication [Unknown]
  - Off label use [Unknown]
